FAERS Safety Report 4288354-0 (Version None)
Quarter: 2004Q1

REPORT INFORMATION
  Report Type: 
  Country: None (occurrence: None)
  Receive Date: 20040205
  Receipt Date: 20040130
  Transmission Date: 20041129
  Serious: Yes (Hospitalization)
  Sender: FDA-Public Use
  Company Number: FRWYE134716MAY03

PATIENT
  Age: 53 Year
  Sex: Female

DRUGS (5)
  1. RAPAMUNE [Suspect]
     Indication: PROPHYLAXIS AGAINST TRANSPLANT REJECTION
     Dosage: 15 MG 1X PER 1 DAY
     Route: 048
     Dates: start: 20030109, end: 20030127
  2. RAPAMUNE [Suspect]
     Indication: PROPHYLAXIS AGAINST TRANSPLANT REJECTION
     Dosage: 15 MG 1X PER 1 DAY
     Route: 048
     Dates: start: 20030128
  3. ANTITHYMOCYTE IMMUNOGLOBULIN [Suspect]
     Indication: PROPHYLAXIS AGAINST TRANSPLANT REJECTION
     Route: 042
     Dates: start: 20030109, end: 20030115
  4. MYCOPHENOLATE MOFETIL [Suspect]
     Indication: PROPHYLAXIS AGAINST TRANSPLANT REJECTION
     Route: 048
     Dates: start: 20030109
  5. SOLU-MEDROL [Suspect]
     Indication: PROPHYLAXIS AGAINST TRANSPLANT REJECTION
     Route: 048
     Dates: start: 20030109

REACTIONS (9)
  - BLOOD LACTATE DEHYDROGENASE INCREASED [None]
  - HAEMODIALYSIS [None]
  - HYPOSIDERAEMIA [None]
  - KIDNEY TRANSPLANT REJECTION [None]
  - MICROCYTIC ANAEMIA [None]
  - NEPHROPATHY [None]
  - PLATELET COUNT DECREASED [None]
  - PYREXIA [None]
  - REMOVAL OF RENAL TRANSPLANT [None]
